FAERS Safety Report 23983182 (Version 1)
Quarter: 2024Q2

REPORT INFORMATION
  Report Type: Spontaneous
  Country: US (occurrence: US)
  Receive Date: 20240617
  Receipt Date: 20240617
  Transmission Date: 20240716
  Serious: No
  Sender: FDA-Public Use
  Company Number: US-DRL-USA-LIT/USA/24/0008459

PATIENT

DRUGS (1)
  1. CLOFARABINE [Suspect]
     Active Substance: CLOFARABINE
     Indication: Langerhans^ cell histiocytosis

REACTIONS (4)
  - Toxicity to various agents [Unknown]
  - Rash pustular [Unknown]
  - Pyrexia [Unknown]
  - Product use in unapproved indication [Unknown]
